FAERS Safety Report 25632411 (Version 1)
Quarter: 2025Q3

REPORT INFORMATION
  Report Type: Spontaneous
  Country: US (occurrence: US)
  Receive Date: 20250801
  Receipt Date: 20250801
  Transmission Date: 20251020
  Serious: Yes (Hospitalization)
  Sender: MYLAN
  Company Number: US-MYLANLABS-2025M1064471

PATIENT
  Age: 76 Year
  Sex: Male

DRUGS (8)
  1. OCTREOTIDE [Suspect]
     Active Substance: OCTREOTIDE
     Indication: Chylothorax
     Dosage: 50 MICROGRAM, Q8H
  2. OCTREOTIDE [Suspect]
     Active Substance: OCTREOTIDE
     Dosage: 50 MICROGRAM, Q8H
     Route: 065
  3. OCTREOTIDE [Suspect]
     Active Substance: OCTREOTIDE
     Dosage: 50 MICROGRAM, Q8H
     Route: 065
  4. OCTREOTIDE [Suspect]
     Active Substance: OCTREOTIDE
     Dosage: 50 MICROGRAM, Q8H
  5. LIPIODOL [Concomitant]
     Active Substance: ETHIODIZED OIL
     Indication: Product used for unknown indication
  6. LIPIODOL [Concomitant]
     Active Substance: ETHIODIZED OIL
     Route: 065
  7. LIPIODOL [Concomitant]
     Active Substance: ETHIODIZED OIL
     Route: 065
  8. LIPIODOL [Concomitant]
     Active Substance: ETHIODIZED OIL

REACTIONS (1)
  - Drug ineffective [Unknown]
